FAERS Safety Report 17402710 (Version 1)
Quarter: 2020Q1

REPORT INFORMATION
  Report Type: Spontaneous
  Country: US (occurrence: US)
  Receive Date: 20200211
  Receipt Date: 20200211
  Transmission Date: 20200409
  Serious: No
  Sender: FDA-Public Use
  Company Number: US-LEXICON PHARMACEUTICALS, INC-20-1606-00082

PATIENT
  Sex: Male

DRUGS (7)
  1. XERMELO [Suspect]
     Active Substance: TELOTRISTAT ETHYL
     Indication: PRODUCT USED FOR UNKNOWN INDICATION
     Dates: start: 2019
  2. CLOPIDOGREL [Concomitant]
     Active Substance: CLOPIDOGREL BISULFATE
  3. IBUPROFEN. [Concomitant]
     Active Substance: IBUPROFEN
  4. ASPIRIN. [Concomitant]
     Active Substance: ASPIRIN
  5. ROSUVASTATIN. [Suspect]
     Active Substance: ROSUVASTATIN
  6. METOPROLOL. [Concomitant]
     Active Substance: METOPROLOL
  7. PANTOPRAZOLE [Concomitant]
     Active Substance: PANTOPRAZOLE

REACTIONS (2)
  - Oedema peripheral [Not Recovered/Not Resolved]
  - Pain in extremity [Not Recovered/Not Resolved]
